FAERS Safety Report 25723446 (Version 1)
Quarter: 2025Q3

REPORT INFORMATION
  Report Type: Spontaneous
  Country: EU (occurrence: EU)
  Receive Date: 20250825
  Receipt Date: 20250825
  Transmission Date: 20251020
  Serious: Yes (Other)
  Sender: ABBVIE
  Company Number: None

PATIENT
  Age: 48 Year
  Sex: Female
  Weight: 50 kg

DRUGS (3)
  1. RINVOQ [Suspect]
     Active Substance: UPADACITINIB
     Indication: Hypersensitivity
     Route: 048
     Dates: start: 202502, end: 20250813
  2. RINVOQ [Suspect]
     Active Substance: UPADACITINIB
     Indication: Hypersensitivity
     Route: 048
     Dates: start: 20240701, end: 202411
  3. EBASTINE [Concomitant]
     Active Substance: EBASTINE
     Indication: Antiallergic therapy
     Route: 048
     Dates: start: 20241101, end: 20250813

REACTIONS (8)
  - Pruritus [Recovered/Resolved]
  - Swelling face [Recovered/Resolved]
  - Eyelid oedema [Recovered/Resolved]
  - Swelling face [Recovered/Resolved]
  - Rash [Recovered/Resolved]
  - Rash [Recovered/Resolved]
  - Rash [Unknown]
  - Acne [Recovered/Resolved]

NARRATIVE: CASE EVENT DATE: 20241101
